FAERS Safety Report 6402457-3 (Version None)
Quarter: 2009Q4

REPORT INFORMATION
  Report Type: 
  Country: None (occurrence: None)
  Receive Date: 20091009
  Receipt Date: 20090930
  Transmission Date: 20100525
  Serious: Yes (Other)
  Sender: FDA-Public Use
  Company Number: ADR34092009

PATIENT
  Age: 69 Year
  Sex: Male

DRUGS (4)
  1. CIPROFLOXACIN [Suspect]
     Indication: LOWER RESPIRATORY TRACT INFECTION
     Dosage: ORAL
     Route: 048
     Dates: start: 20081112
  2. DOXYCYCLINE [Concomitant]
  3. PREDINISOLONE [Concomitant]
  4. SYMBICORT [Concomitant]

REACTIONS (3)
  - GAIT DISTURBANCE [None]
  - TENDON RUPTURE [None]
  - TENDONITIS [None]
